FAERS Safety Report 18579245 (Version 2)
Quarter: 2020Q4

REPORT INFORMATION
  Report Type: Report from Study
  Country: GB (occurrence: GB)
  Receive Date: 20201204
  Receipt Date: 20201228
  Transmission Date: 20210114
  Serious: Yes (Hospitalization)
  Sender: FDA-Public Use
  Company Number: GB-ROCHE-2720694

PATIENT
  Age: 76 Year
  Sex: Male
  Weight: 71 kg

DRUGS (3)
  1. PEMETREXED. [Suspect]
     Active Substance: PEMETREXED
     Indication: PLEURAL MESOTHELIOMA MALIGNANT
     Dosage: PEMETREXED - DATE OF LAST ADMINISTRATION BEFORE SAE: 15/OCT/2020
     Route: 042
     Dates: start: 20200709
  2. BEVACIZUMAB. [Suspect]
     Active Substance: BEVACIZUMAB
     Indication: PLEURAL MESOTHELIOMA MALIGNANT
     Dosage: BEVACIZUMAB - DATE OF LAST ADMINISTRATION BEFORE SAE: 26/NOV/2020
     Route: 042
     Dates: start: 20200709
  3. CARBOPLATIN. [Suspect]
     Active Substance: CARBOPLATIN
     Indication: PLEURAL MESOTHELIOMA MALIGNANT
     Dosage: CARBOPLATIN - DATE OF LAST ADMINISTRATION BEFORE SAE: 15/OCT/2020
     Route: 042
     Dates: start: 20200709

REACTIONS (2)
  - Pyrexia [Recovered/Resolved]
  - Anaemia [Recovered/Resolved]

NARRATIVE: CASE EVENT DATE: 20201029
